FAERS Safety Report 19200251 (Version 1)
Quarter: 2021Q2

REPORT INFORMATION
  Report Type: Spontaneous
  Country: US (occurrence: US)
  Receive Date: 20210428
  Receipt Date: 20210428
  Transmission Date: 20210717
  Serious: No
  Sender: FDA-Public Use
  Company Number: None

PATIENT
  Sex: Female
  Weight: 68.04 kg

DRUGS (1)
  1. MACROBID [Suspect]
     Active Substance: NITROFURANTOIN\NITROFURANTOIN MONOHYDRATE
     Indication: URINARY TRACT INFECTION
     Dosage: ?          QUANTITY:100 MG MILLIGRAM(S);?
     Dates: start: 20201231, end: 20210105

REACTIONS (6)
  - Skin ulcer [None]
  - Hypersensitivity [None]
  - Chest discomfort [None]
  - Pruritus [None]
  - Skin discolouration [None]
  - Headache [None]
